FAERS Safety Report 7061527-X (Version None)
Quarter: 2010Q4

REPORT INFORMATION
  Report Type: 
  Country: None (occurrence: None)
  Receive Date: 20101026
  Receipt Date: 20101013
  Transmission Date: 20110411
  Serious: Yes (Death, Hospitalization, Other)
  Sender: FDA-Public Use
  Company Number: US-ELI_LILLY_AND_COMPANY-US201009002414

PATIENT
  Sex: Female

DRUGS (8)
  1. FORTEO [Suspect]
     Indication: OSTEOPOROSIS
     Dosage: 20 UG, DAILY (1/D)
  2. CARDIZEM CD [Concomitant]
  3. LASIX [Concomitant]
  4. OXYBUTYN [Concomitant]
  5. HYDROCODONE [Concomitant]
  6. ALPRAZOLAM [Concomitant]
  7. RAMIPRIL [Concomitant]
  8. SOMA [Concomitant]

REACTIONS (8)
  - ACUTE MYOCARDIAL INFARCTION [None]
  - ATRIAL FIBRILLATION [None]
  - CARDIAC FAILURE CONGESTIVE [None]
  - FALL [None]
  - HIP FRACTURE [None]
  - PNEUMONIA [None]
  - SUBDURAL HAEMATOMA [None]
  - URINARY TRACT INFECTION [None]
